FAERS Safety Report 13325637 (Version 3)
Quarter: 2018Q1

REPORT INFORMATION
  Report Type: Report from Study
  Country: None (occurrence: CA)
  Receive Date: 20170308
  Receipt Date: 20180202
  Transmission Date: 20180508
  Serious: Yes (Hospitalization, Disabling, Other)
  Sender: FDA-Public Use
  Company Number: CA-ABBVIE-16K-028-1620961-00

PATIENT
  Age: 69 Year
  Sex: Male

DRUGS (1)
  1. HUMIRA [Suspect]
     Active Substance: ADALIMUMAB
     Indication: CROHN^S DISEASE
     Route: 058
     Dates: start: 20091222

REACTIONS (9)
  - Impaired work ability [Not Recovered/Not Resolved]
  - Fistula discharge [Not Recovered/Not Resolved]
  - Fistula [Not Recovered/Not Resolved]
  - Impaired quality of life [Not Recovered/Not Resolved]
  - Cataract [Unknown]
  - Visual impairment [Unknown]
  - Pneumonia [Recovered/Resolved]
  - Fistula discharge [Not Recovered/Not Resolved]
  - Haemorrhoids [Not Recovered/Not Resolved]

NARRATIVE: CASE EVENT DATE: 201701
